APPROVED DRUG PRODUCT: CLARITIN
Active Ingredient: LORATADINE
Strength: 10MG
Dosage Form/Route: TABLET, CHEWABLE;ORAL
Application: N021891 | Product #002
Applicant: BAYER HEALTHCARE LLC
Approved: Nov 21, 2018 | RLD: Yes | RS: Yes | Type: OTC